FAERS Safety Report 7644557-6 (Version None)
Quarter: 2011Q3

REPORT INFORMATION
  Report Type: 
  Country: None (occurrence: None)
  Receive Date: 20110729
  Receipt Date: 20110725
  Transmission Date: 20111222
  Serious: Yes (Other)
  Sender: FDA-Public Use
  Company Number: US-PFIZER INC-2011169630

PATIENT

DRUGS (5)
  1. XANAX [Suspect]
     Dosage: UNK
  2. PLAVIX [Suspect]
     Dosage: UNK
  3. CYMBALTA [Suspect]
     Dosage: UNK
  4. ASPIRIN [Suspect]
     Dosage: UNK
  5. DARVON [Suspect]
     Dosage: UNK

REACTIONS (12)
  - OVARIAN CANCER [None]
  - BRAIN NEOPLASM MALIGNANT [None]
  - AMNESIA [None]
  - BRAIN OEDEMA [None]
  - RADICULOPATHY [None]
  - CEREBRAL CYST [None]
  - THROMBOPHLEBITIS [None]
  - MYOCARDIAL INFARCTION [None]
  - ROAD TRAFFIC ACCIDENT [None]
  - FIBROMYALGIA [None]
  - HIATUS HERNIA [None]
  - BIOPSY BREAST [None]
